FAERS Safety Report 8588916-6 (Version None)
Quarter: 2012Q3

REPORT INFORMATION
  Report Type: 
  Country: None (occurrence: None)
  Receive Date: 20120813
  Receipt Date: 20120803
  Transmission Date: 20120928
  Serious: Yes (Death)
  Sender: FDA-Public Use
  Company Number: FR-SANOFI-AVENTIS-2012SA055602

PATIENT
  Age: 66 Year
  Sex: Male

DRUGS (18)
  1. PLITICAN [Suspect]
     Route: 042
     Dates: start: 20120314, end: 20120319
  2. SANDIMMUNE [Suspect]
     Route: 042
     Dates: start: 20120123, end: 20120404
  3. PHENOXYMETHYL PENICILLIN [Suspect]
     Dosage: 2 MILLIONS IU DAILY
     Route: 042
     Dates: end: 20120322
  4. TRANXENE [Suspect]
     Route: 048
     Dates: start: 20120313, end: 20120316
  5. BACTRIM DS [Suspect]
     Route: 048
     Dates: end: 20120322
  6. ZOLPIDEM TARTRATE [Suspect]
     Indication: INSOMNIA
     Route: 048
     Dates: end: 20120318
  7. DELURSAN [Suspect]
     Indication: CHOLESTASIS
     Route: 048
     Dates: end: 20120511
  8. VALGANCICLOVIR [Suspect]
     Route: 048
     Dates: start: 20120310, end: 20120316
  9. EFFEXOR [Suspect]
     Route: 048
     Dates: start: 20120313, end: 20120322
  10. ALBUMIN [Suspect]
     Dosage: FORM: SOLUTION
     Route: 042
     Dates: end: 20120306
  11. VFEND [Suspect]
     Dosage: POWDER FOR SOLUTION FOR PERFUSION
     Route: 042
     Dates: end: 20120511
  12. SOLU-MEDROL [Suspect]
     Indication: IMMUNOSUPPRESSION
     Route: 042
     Dates: end: 20120511
  13. LEVOTHYROXINE SODIUM [Suspect]
     Indication: HYPOTHYROIDISM
     Route: 048
     Dates: end: 20120511
  14. TIORFAN [Suspect]
     Route: 048
     Dates: end: 20120425
  15. FOLIC ACID [Suspect]
     Indication: VITAMIN B12 DEFICIENCY
     Route: 048
     Dates: end: 20120405
  16. NICARDIPINE HCL [Suspect]
     Indication: HYPERTENSION
     Route: 048
     Dates: end: 20120415
  17. HEPARIN [Suspect]
     Route: 042
     Dates: end: 20120321
  18. OMEPRAZOLE [Suspect]
     Route: 048
     Dates: end: 20120511

REACTIONS (1)
  - THROMBOTIC MICROANGIOPATHY [None]
